FAERS Safety Report 4350005-4 (Version None)
Quarter: 2004Q2

REPORT INFORMATION
  Report Type: 
  Country: None (occurrence: None)
  Receive Date: 20040428
  Receipt Date: 20040428
  Transmission Date: 20050107
  Serious: Yes (Hospitalization)
  Sender: FDA-Public Use
  Company Number: None

PATIENT
  Age: 86 Year
  Sex: Female
  Weight: 54.4316 kg

DRUGS (3)
  1. DURAGESIC [Suspect]
     Indication: PAIN
     Dosage: 50 UG Q 72 HOURS TRANSDERMAL
     Route: 062
     Dates: start: 20031219, end: 20040427
  2. DURAGESIC [Suspect]
     Indication: RHEUMATOID ARTHRITIS
     Dosage: 50 UG Q 72 HOURS TRANSDERMAL
     Route: 062
     Dates: start: 20031219, end: 20040427
  3. VICODIN [Concomitant]

REACTIONS (3)
  - DRUG EFFECT INCREASED [None]
  - HYPOTENSION [None]
  - SEDATION [None]
